FAERS Safety Report 4886731-8 (Version None)
Quarter: 2005Q4

REPORT INFORMATION
  Report Type: 
  Country: None (occurrence: None)
  Receive Date: 20051220
  Receipt Date: 20041108
  Transmission Date: 20060501
  Serious: Yes (Other)
  Sender: FDA-Public Use
  Company Number: HQWYE642908OCT04

PATIENT
  Age: 51 Year
  Sex: Female
  Weight: 55.39 kg

DRUGS (3)
  1. EFFEXOR XR [Suspect]
     Indication: HOT FLUSH
     Dosage: 37.5 MG 1X PER 1 DAY, ORAL
     Route: 048
     Dates: start: 20040927, end: 20040927
  2. EFFEXOR XR [Suspect]
     Indication: MENOPAUSE
     Dosage: 37.5 MG 1X PER 1 DAY, ORAL
     Route: 048
     Dates: start: 20040927, end: 20040927
  3. CALTRATE (CALCIUM CARBONATE) [Concomitant]

REACTIONS (5)
  - AGITATION [None]
  - COORDINATION ABNORMAL [None]
  - DIZZINESS [None]
  - DYSPHORIA [None]
  - TREMOR [None]
